FAERS Safety Report 7234874-6 (Version None)
Quarter: 2011Q1

REPORT INFORMATION
  Report Type: 
  Country: None (occurrence: None)
  Receive Date: 20110120
  Receipt Date: 20110119
  Transmission Date: 20110831
  Serious: No
  Sender: FDA-Public Use
  Company Number: US-PFIZER INC-US-WYE-H14409410

PATIENT
  Sex: Female
  Weight: 68 kg

DRUGS (5)
  1. XANAX [Concomitant]
     Dosage: UNK
     Route: 048
     Dates: start: 20070101, end: 20100101
  2. LAMOTRIGINE [Concomitant]
  3. ULTRAM [Concomitant]
  4. LISINOPRIL [Concomitant]
  5. EFFEXOR XR [Suspect]
     Indication: DEPRESSION
     Dosage: 300 MG, FREQUENCY UNKNOWN TAKEN ^ON AND OFF^ OVER THE PAST 23 YEARS
     Dates: start: 19870101

REACTIONS (1)
  - DRUG INEFFECTIVE [None]
